FAERS Safety Report 20448576 (Version 1)
Quarter: 2022Q1

REPORT INFORMATION
  Report Type: Spontaneous
  Country: US (occurrence: US)
  Receive Date: 20220209
  Receipt Date: 20220209
  Transmission Date: 20220423
  Serious: No
  Sender: FDA-Public Use
  Company Number: US-BAYER-2022A017412

PATIENT
  Age: 40 Year
  Sex: Female

DRUGS (4)
  1. MIRENA [Suspect]
     Active Substance: LEVONORGESTREL
     Indication: Intra-uterine contraceptive device insertion
     Dosage: 20?G/DAY
     Route: 015
     Dates: start: 201709
  2. VITAMIN D NOS [Concomitant]
     Active Substance: VITAMIN D NOS
     Dosage: UNK UNK, QD
  3. FASENRA [Concomitant]
     Active Substance: BENRALIZUMAB
     Dosage: UNK, Q4WK
     Route: 058
  4. FASENRA [Concomitant]
     Active Substance: BENRALIZUMAB
     Dosage: UNK UNK, Q8WK
     Route: 058

REACTIONS (1)
  - Asthma [Not Recovered/Not Resolved]
